FAERS Safety Report 7790349-7 (Version None)
Quarter: 2011Q3

REPORT INFORMATION
  Report Type: 
  Country: None (occurrence: None)
  Receive Date: 20110930
  Receipt Date: 20110922
  Transmission Date: 20111222
  Serious: Yes (Other)
  Sender: FDA-Public Use
  Company Number: US-GENZYME-CLOF-1001781

PATIENT
  Sex: Male
  Weight: 98 kg

DRUGS (9)
  1. TOBRAMYCIN [Concomitant]
     Indication: PYREXIA
     Dosage: UNK, Q12HR
     Route: 065
     Dates: start: 20100417, end: 20100419
  2. LISINOPRIL [Concomitant]
     Indication: HYPERTENSION
     Dosage: UNK, BID
     Route: 065
     Dates: end: 20100503
  3. VALACICLOVIR [Concomitant]
     Indication: ANTIVIRAL PROPHYLAXIS
     Dosage: UNK, BID
     Route: 065
     Dates: start: 20100420, end: 20100421
  4. ALLOPURINOL [Concomitant]
     Indication: PROPHYLAXIS
     Dosage: UNK, QD
     Route: 065
     Dates: start: 20100408, end: 20100415
  5. FUROSEMIDE [Concomitant]
     Indication: HYPERTENSION
     Dosage: UNK, BID
     Route: 065
     Dates: end: 20100512
  6. CLOLAR [Suspect]
     Indication: ACUTE MYELOID LEUKAEMIA
     Dosage: 65 MG, QDX5
     Route: 042
     Dates: start: 20100427, end: 20100501
  7. FLUDARA [Suspect]
     Indication: ACUTE MYELOID LEUKAEMIA
     Dosage: UNK
     Route: 065
     Dates: start: 20100408, end: 20100412
  8. FILGRASTIM [Suspect]
     Indication: ACUTE MYELOID LEUKAEMIA
     Dosage: UNK
     Route: 065
     Dates: start: 20100409, end: 20100427
  9. CYTARABINE [Suspect]
     Indication: ACUTE MYELOID LEUKAEMIA
     Dosage: UNK
     Route: 065
     Dates: start: 20100408, end: 20100412

REACTIONS (2)
  - PROTEINURIA [None]
  - RENAL FAILURE ACUTE [None]
